FAERS Safety Report 9929045 (Version 1)
Quarter: 2014Q1

REPORT INFORMATION
  Report Type: Spontaneous
  Country: IN (occurrence: None)
  Receive Date: 20140224
  Receipt Date: 20140224
  Transmission Date: 20141002
  Serious: Yes (Hospitalization, Other)
  Sender: FDA-Public Use
  Company Number: FK201400527

PATIENT
  Age: 23 Year
  Sex: Female

DRUGS (10)
  1. METHYLPREDNISOLONE SODIUM SUCCINATE [Suspect]
     Indication: IMMUNE THROMBOCYTOPENIC PURPURA
     Dosage: 100 MG, INITIATED PRE-OP THEN TAPERED, INTRAVENOUS?(NOT OTHERWISE SPECIFIED)?
     Route: 042
  2. PREDNISOLONE [Suspect]
     Indication: IMMUNE THROMBOCYTOPENIC PURPURA
  3. IMMUNE GLOBULIN NOS [Suspect]
     Indication: IMMUNE THROMBOCYTOPENIC PURPURA
     Dosage: 60 GM, WEEK 21/ 2 DOSES ON ALTERNATE DAYS,
  4. SINGLE DONOR PLATELET(PLATELETS) [Concomitant]
  5. MENINGOCOCCAL VACCINE (MENINGOCOCCAL VACCINE) [Concomitant]
  6. PNEUM000CCAL VACCINE(PNEUMOCOCCAL VACCINE) [Concomitant]
  7. INFLUENZA B VACCINE(INFLUENZA VACCINE) [Concomitant]
  8. PLATELET RICH PLASMA (PLATELETS, CONCENTRATED) [Concomitant]
  9. ANESTHESIA (ANALGESICS AND ANESTHETICS) [Concomitant]
  10. OXYTOCIN (OXYTOCIN) [Concomitant]

REACTIONS (6)
  - Maternal exposure during pregnancy [None]
  - Gestational diabetes [None]
  - Premature rupture of membranes [None]
  - Procedural haemorrhage [None]
  - Diabetes mellitus [None]
  - Premature delivery [None]
